FAERS Safety Report 10474224 (Version 3)
Quarter: 2016Q1

REPORT INFORMATION
  Report Type: Spontaneous
  Country: US (occurrence: US)
  Receive Date: 20140924
  Receipt Date: 20160212
  Transmission Date: 20160525
  Serious: Yes (Hospitalization)
  Sender: FDA-Public Use
  Company Number: US-ELI_LILLY_AND_COMPANY-US201309001293

PATIENT
  Age: 75 Year
  Sex: Female

DRUGS (13)
  1. LOSARTAN. [Suspect]
     Active Substance: LOSARTAN
     Dosage: 25 MG, QD
  2. CRESTOR [Suspect]
     Active Substance: ROSUVASTATIN CALCIUM
     Dosage: 5 MG, 3/W
     Route: 065
  3. BABY ASPIRIN [Concomitant]
     Active Substance: ASPIRIN
  4. EFFIENT [Suspect]
     Active Substance: PRASUGREL HYDROCHLORIDE
     Dosage: 10 MG, QD
     Route: 065
  5. LOSARTAN. [Suspect]
     Active Substance: LOSARTAN
     Indication: CARDIAC DISORDER
     Dosage: 50 MG, QD
     Dates: start: 201301
  6. LASIX [Suspect]
     Active Substance: FUROSEMIDE
     Indication: CARDIAC DISORDER
     Dosage: 1 DF, 2/W
     Dates: start: 201301
  7. EFFIENT [Suspect]
     Active Substance: PRASUGREL HYDROCHLORIDE
     Indication: STENT PLACEMENT
     Dosage: 10 MG, QD
     Dates: start: 20130222
  8. EFFIENT [Suspect]
     Active Substance: PRASUGREL HYDROCHLORIDE
  9. THYROID [Concomitant]
     Active Substance: LEVOTHYROXINE\LIOTHYRONINE
  10. CRESTOR [Suspect]
     Active Substance: ROSUVASTATIN CALCIUM
     Indication: BLOOD CHOLESTEROL
     Dosage: 10 MG, QD
     Dates: start: 201301
  11. METOPROLOL. [Suspect]
     Active Substance: METOPROLOL
     Indication: CARDIAC DISORDER
     Dosage: UNK
     Dates: start: 201301
  12. EFFIENT [Suspect]
     Active Substance: PRASUGREL HYDROCHLORIDE
  13. CRESTOR [Suspect]
     Active Substance: ROSUVASTATIN CALCIUM
     Dosage: 5 MG, QD

REACTIONS (27)
  - Disturbance in attention [Unknown]
  - Wrong technique in product usage process [Unknown]
  - Oedema peripheral [Unknown]
  - Cataract [Unknown]
  - Gingival pain [Unknown]
  - Mobility decreased [Unknown]
  - Expired product administered [Unknown]
  - Pain [Unknown]
  - Asthenia [Unknown]
  - Dysuria [Unknown]
  - Fatigue [Unknown]
  - Dizziness [Unknown]
  - Pollakiuria [Unknown]
  - Urinary incontinence [Unknown]
  - Cellulitis [Unknown]
  - Abdominal pain upper [Unknown]
  - Contusion [Unknown]
  - Dental caries [Unknown]
  - Dry skin [Unknown]
  - Dysphagia [Unknown]
  - Pelvic pain [Unknown]
  - Diarrhoea [Unknown]
  - Wheezing [Unknown]
  - Dysarthria [Unknown]
  - Visual impairment [Unknown]
  - Dyspnoea [Unknown]
  - Back pain [Unknown]

NARRATIVE: CASE EVENT DATE: 201408
